FAERS Safety Report 8799062 (Version 1)
Quarter: 2012Q4

REPORT INFORMATION
  Report Type: 
  Country: US (occurrence: US)
  Receive Date: 20120920
  Receipt Date: 20120920
  Transmission Date: 20130627
  Serious: No
  Sender: FDA-Public Use
  Company Number: US-ASTRAZENECA-2000UW04480

PATIENT
  Age: 71 Year
  Sex: Female
  Weight: 56.7 kg

DRUGS (3)
  1. LISINOPRIL [Suspect]
     Route: 048
  2. TAMOXIFEN [Suspect]
     Indication: PROPHYLAXIS
     Route: 048
     Dates: start: 200010, end: 20001110
  3. VITAMINS [Concomitant]
     Indication: PROPHYLAXIS

REACTIONS (6)
  - Hypoaesthesia [Recovered/Resolved]
  - Hypoaesthesia [Recovered/Resolved]
  - Abdominal discomfort [Recovered/Resolved]
  - Diarrhoea [Recovered/Resolved]
  - Drug hypersensitivity [Unknown]
  - Rash [Unknown]
